FAERS Safety Report 6446769-6 (Version None)
Quarter: 2009Q4

REPORT INFORMATION
  Report Type: 
  Country: None (occurrence: None)
  Receive Date: 20091119
  Receipt Date: 20091106
  Transmission Date: 20100525
  Serious: Yes (Hospitalization)
  Sender: FDA-Public Use
  Company Number: PHHY2009JP48942

PATIENT
  Age: 66 Year
  Sex: Female

DRUGS (2)
  1. DIOVAN HCT [Suspect]
     Indication: HYPERTENSION
     Dosage: 80/12.5 MG
     Route: 048
     Dates: start: 20090716, end: 20091029
  2. DIOVAN [Suspect]
     Dosage: 80MG, DAILY IN THE MORNING
     Route: 048
     Dates: end: 20091029

REACTIONS (1)
  - CEREBRAL INFARCTION [None]
